FAERS Safety Report 11168738 (Version 6)
Quarter: 2015Q4

REPORT INFORMATION
  Report Type: Report from Study
  Country: US (occurrence: US)
  Receive Date: 20150605
  Receipt Date: 20151012
  Transmission Date: 20160304
  Serious: Yes (Hospitalization)
  Sender: FDA-Public Use
  Company Number: US-AMGEN-USASL2015052854

PATIENT
  Age: 63 Year
  Sex: Female

DRUGS (14)
  1. PREDNISONE. [Concomitant]
     Active Substance: PREDNISONE
     Dosage: UNK
  2. ENBREL [Suspect]
     Active Substance: ETANERCEPT
     Indication: RHEUMATOID ARTHRITIS
     Dosage: 50 MG, QWK
     Route: 065
     Dates: start: 20150513
  3. HYDROCODONE [Concomitant]
     Active Substance: HYDROCODONE
     Dosage: UNK
  4. TRAMADOL. [Concomitant]
     Active Substance: TRAMADOL
     Dosage: UNK
  5. TRAZODONE [Concomitant]
     Active Substance: TRAZODONE HYDROCHLORIDE
     Dosage: UNK
  6. ENBREL [Suspect]
     Active Substance: ETANERCEPT
     Dosage: UNK
     Route: 065
  7. CYMBALTA [Concomitant]
     Active Substance: DULOXETINE HYDROCHLORIDE
     Dosage: UNK
  8. ADVAIR HFA [Concomitant]
     Active Substance: FLUTICASONE PROPIONATE\SALMETEROL XINAFOATE
     Dosage: 500, UNK
  9. METHOTREXATE [Concomitant]
     Active Substance: METHOTREXATE
     Dosage: UNK
  10. CLONIDINE. [Concomitant]
     Active Substance: CLONIDINE
     Dosage: UNK
  11. ENBREL [Suspect]
     Active Substance: ETANERCEPT
     Dosage: UNK
     Route: 065
  12. NAPROXEN SODIUM. [Concomitant]
     Active Substance: NAPROXEN SODIUM
     Dosage: UNK
     Dates: end: 2015
  13. FISH OIL [Concomitant]
     Active Substance: FISH OIL
     Dosage: UNK
  14. OXYBUTIN [Concomitant]
     Active Substance: OXYBUTYNIN
     Dosage: UNK

REACTIONS (12)
  - Eye disorder [Unknown]
  - Therapeutic response decreased [Recovering/Resolving]
  - Urinary tract infection [Not Recovered/Not Resolved]
  - Headache [Unknown]
  - Back pain [Not Recovered/Not Resolved]
  - Eye pain [Unknown]
  - Dyspepsia [Unknown]
  - Fibromyalgia [Unknown]
  - Cerebrovascular accident [Unknown]
  - Injection site pain [Not Recovered/Not Resolved]
  - Hypertension [Recovering/Resolving]
  - Heart rate increased [Unknown]

NARRATIVE: CASE EVENT DATE: 2015
